FAERS Safety Report 8217964-0 (Version None)
Quarter: 2012Q1

REPORT INFORMATION
  Report Type: 
  Country: None (occurrence: None)
  Receive Date: 20120315
  Receipt Date: 20120229
  Transmission Date: 20120608
  Serious: Yes (Other)
  Sender: FDA-Public Use
  Company Number: THQ2012A01788

PATIENT
  Age: 35 Year
  Sex: Female

DRUGS (6)
  1. AMOXICILLIN TRIHYDRATE [Suspect]
     Indication: PRODUCT USED FOR UNKNOWN INDICATION
     Dosage: 4 DF (2 DF, 2 IN 1 D), PER ORAL
     Route: 048
     Dates: start: 20120201
  2. LANSOPRAZOLE [Suspect]
     Indication: PRODUCT USED FOR UNKNOWN INDICATION
     Dosage: 60 MG (30 MG, 2 IN 1 D), PER ORAL
     Route: 048
  3. CLARITHROMYCIN [Suspect]
     Indication: PRODUCT USED FOR UNKNOWN INDICATION
     Dosage: 1000 MG (500 MG, 2 IN 1 D), PER ORAL
     Route: 048
  4. FEXOFENADINE HYDROCHLORIDE [Concomitant]
  5. MONTELUKAST [Concomitant]
  6. ALBUTEROL [Concomitant]

REACTIONS (4)
  - DYSGEUSIA [None]
  - LIP DISCOLOURATION [None]
  - MUCOSAL DISCOLOURATION [None]
  - TONGUE DISCOLOURATION [None]
